FAERS Safety Report 5596768-1 (Version None)
Quarter: 2008Q1

REPORT INFORMATION
  Report Type: 
  Country: None (occurrence: None)
  Receive Date: 20080118
  Receipt Date: 20080109
  Transmission Date: 20080703
  Serious: Yes (Death)
  Sender: FDA-Public Use
  Company Number: US-PFIZER INC-2008003085

PATIENT
  Age: 56 Year
  Sex: Female

DRUGS (10)
  1. QUETIAPINE [Suspect]
  2. METOPROLOL TARTRATE [Suspect]
  3. METAXALONE [Suspect]
  4. ALPRAZOLAM [Suspect]
  5. VENLAFAXINE HCL [Suspect]
  6. EZETIMIBE/SIMVASTATIN [Suspect]
  7. CHLORPHENIRAMINE MALEATE [Concomitant]
  8. FEXOFENADINE [Concomitant]
  9. ESTROGENS [Concomitant]
  10. BUTALBITAL ACETAMINOPHEN AND CAFFEINE [Concomitant]

REACTIONS (3)
  - CARDIAC ARREST [None]
  - COMPLETED SUICIDE [None]
  - RESPIRATORY ARREST [None]
